FAERS Safety Report 9021536 (Version 1)
Quarter: 2013Q1

REPORT INFORMATION
  Report Type: Spontaneous
  Country: CA (occurrence: CA)
  Receive Date: 20130119
  Receipt Date: 20130119
  Transmission Date: 20140127
  Serious: Yes (Other)
  Sender: FDA-Public Use
  Company Number: CA-AMGEN-CANSP2013002061

PATIENT
  Age: 74 Year
  Sex: Female
  Weight: 54.09 kg

DRUGS (3)
  1. PROLIA [Suspect]
     Indication: OSTEOPOROSIS
     Dosage: 60 MG, UNK
     Dates: start: 20121211
  2. FEMARA [Concomitant]
  3. METAMUCIL                          /00029101/ [Concomitant]

REACTIONS (3)
  - Haemorrhoidal haemorrhage [Not Recovered/Not Resolved]
  - Haemorrhoids [Not Recovered/Not Resolved]
  - Constipation [Unknown]
